FAERS Safety Report 16866700 (Version 1)
Quarter: 2019Q3

REPORT INFORMATION
  Report Type: Spontaneous
  Country: GB (occurrence: GB)
  Receive Date: 20190930
  Receipt Date: 20190930
  Transmission Date: 20191005
  Serious: Yes (Other)
  Sender: FDA-Public Use
  Company Number: GB-TEVA-2019-GB-1113944

PATIENT
  Age: 30 Year
  Sex: Female
  Weight: 50 kg

DRUGS (6)
  1. CO-AMOXICLAV [Concomitant]
     Active Substance: AMOXICILLIN\CLAVULANATE POTASSIUM
     Dosage: 3 DOSAGE FORMS PER DAY
     Dates: start: 20190704, end: 20190711
  2. PREDNISOLONE. [Concomitant]
     Active Substance: PREDNISOLONE
     Dosage: 6 DOSAGE FORMS PER DAY FOR 7 DAYS
     Dates: start: 20190903
  3. CLARITHROMYCIN. [Suspect]
     Active Substance: CLARITHROMYCIN
     Dosage: 500 MILLIGRAM PER EVERY 12 HOURS
     Dates: start: 20190828
  4. AMOXICILLIN. [Concomitant]
     Active Substance: AMOXICILLIN
     Dosage: 3 DOSAGE FORMS PER DAY
     Dates: start: 20190812, end: 20190817
  5. DOXYCYCLINE. [Concomitant]
     Active Substance: DOXYCYCLINE
     Dosage: TAKE TWO CAPSULES AT ONCE, THEN ONE DAILY THERE...
     Dates: start: 20190903
  6. NYSTAN [Concomitant]
     Active Substance: NYSTATIN
     Dosage: SWISH 1ML ROUND THE MOUTH THEN SWALLOW FOUR TIM...
     Dates: start: 20190903

REACTIONS (1)
  - Oral candidiasis [Recovering/Resolving]
